FAERS Safety Report 15779653 (Version 1)
Quarter: 2019Q1

REPORT INFORMATION
  Report Type: Spontaneous
  Country: US (occurrence: US)
  Receive Date: 20190101
  Receipt Date: 20190101
  Transmission Date: 20190417
  Serious: No
  Sender: FDA-Public Use
  Company Number: US-BAXTER-2018BAX031386

PATIENT
  Sex: Female

DRUGS (6)
  1. DESMOPRESSIN [Suspect]
     Active Substance: DESMOPRESSIN
     Route: 042
     Dates: start: 20181220
  2. BENADRYL [Suspect]
     Active Substance: DIPHENHYDRAMINE HYDROCHLORIDE
     Indication: ADVERSE EVENT
     Route: 065
     Dates: start: 20181220
  3. 0.9% SODIUM CHLORIDE INJECTION [Suspect]
     Active Substance: SODIUM CHLORIDE
     Dosage: DRUG RE-INTRODUCED
     Route: 042
     Dates: start: 20181220
  4. 0.9% SODIUM CHLORIDE INJECTION [Suspect]
     Active Substance: SODIUM CHLORIDE
     Indication: MEDICATION DILUTION
     Route: 042
     Dates: start: 20181220, end: 20181220
  5. DESMOPRESSIN [Suspect]
     Active Substance: DESMOPRESSIN
     Indication: PRODUCT USED FOR UNKNOWN INDICATION
     Dosage: SEVERAL DOSES PRIOR TO THE EVENTS WITHOUT ANY SIDE EFFECTS
     Route: 065
  6. DESMOPRESSIN [Suspect]
     Active Substance: DESMOPRESSIN
     Dosage: DRUG RE-INTRODUCED
     Route: 042
     Dates: start: 20181220

REACTIONS (7)
  - Nausea [Unknown]
  - Feeling hot [Unknown]
  - Somnolence [Unknown]
  - Hypertension [Unknown]
  - Hyperhidrosis [Unknown]
  - Nervousness [Unknown]
  - Anxiety [Unknown]

NARRATIVE: CASE EVENT DATE: 20181220
